FAERS Safety Report 14020044 (Version 1)
Quarter: 2017Q3

REPORT INFORMATION
  Report Type: Spontaneous
  Country: US (occurrence: US)
  Receive Date: 20170928
  Receipt Date: 20170928
  Transmission Date: 20171128
  Serious: No
  Sender: FDA-Public Use
  Company Number: US-ALLERGAN-1710913US

PATIENT
  Sex: Male

DRUGS (2)
  1. FINASTERIDE. [Concomitant]
     Active Substance: FINASTERIDE
  2. RECTIV [Suspect]
     Active Substance: NITROGLYCERIN
     Indication: SEIZURE
     Dosage: UNK
     Dates: start: 201703, end: 201703

REACTIONS (3)
  - Drug ineffective [Unknown]
  - Pain [Recovered/Resolved]
  - Off label use [Unknown]

NARRATIVE: CASE EVENT DATE: 201703
